FAERS Safety Report 25073303 (Version 1)
Quarter: 2025Q1

REPORT INFORMATION
  Report Type: Other
  Country: NI (occurrence: NI)
  Receive Date: 20250313
  Receipt Date: 20250313
  Transmission Date: 20250409
  Serious: No
  Sender: TOLMAR
  Company Number: NI-TOLMAR, INC.-25NI057384

PATIENT
  Age: 8 Year
  Sex: Female

DRUGS (2)
  1. ELIGARD [Suspect]
     Active Substance: LEUPROLIDE ACETATE
     Indication: Precocious puberty
     Dosage: 22.5 MILLIGRAM, Q 3 MONTH
     Route: 058
     Dates: start: 20241205
  2. ELIGARD [Suspect]
     Active Substance: LEUPROLIDE ACETATE
     Indication: Precocious puberty

REACTIONS (3)
  - Sneezing [Recovered/Resolved]
  - Vaginal discharge [Recovered/Resolved]
  - Rhinorrhoea [Recovered/Resolved]

NARRATIVE: CASE EVENT DATE: 20241221
